FAERS Safety Report 13356057 (Version 1)
Quarter: 2017Q1

REPORT INFORMATION
  Report Type: Spontaneous
  Country: FR (occurrence: FR)
  Receive Date: 20170321
  Receipt Date: 20170321
  Transmission Date: 20170429
  Serious: Yes (Hospitalization)
  Sender: FDA-Public Use
  Company Number: FR-UCBSA-2017010051

PATIENT
  Age: 29 Year
  Sex: Female

DRUGS (7)
  1. URBANYL [Suspect]
     Active Substance: CLOBAZAM
     Dosage: 15 MG, ONCE DAILY (QD)
     Dates: start: 201702
  2. DIHYDAN [Suspect]
     Active Substance: PHENYTOIN
     Indication: PRODUCT USED FOR UNKNOWN INDICATION
     Dosage: 200 MG, 2X/DAY (BID)
     Route: 048
     Dates: end: 201702
  3. KEPPRA [Suspect]
     Active Substance: LEVETIRACETAM
     Indication: PRODUCT USED FOR UNKNOWN INDICATION
     Dosage: 500 MG, 2X/DAY (BID)
     Route: 048
     Dates: end: 201702
  4. URBANYL [Suspect]
     Active Substance: CLOBAZAM
     Indication: PRODUCT USED FOR UNKNOWN INDICATION
     Dosage: 10 MG, ONCE DAILY (QD)
     Route: 048
     Dates: end: 201702
  5. DIHYDAN [Suspect]
     Active Substance: PHENYTOIN
     Dosage: 250 MG, 2X/DAY (BID)
     Dates: start: 2017
  6. KEPPRA [Suspect]
     Active Substance: LEVETIRACETAM
     Dosage: 750 MG, 2X/DAY (BID)
     Dates: start: 201702
  7. DIHYDAN [Suspect]
     Active Substance: PHENYTOIN
     Dosage: 300 MG, 2X/DAY (BID)
     Dates: start: 201702, end: 2017

REACTIONS (2)
  - Tonic clonic movements [Recovered/Resolved]
  - Pregnancy [Unknown]

NARRATIVE: CASE EVENT DATE: 2016
